FAERS Safety Report 14342329 (Version 2)
Quarter: 2018Q1

REPORT INFORMATION
  Report Type: Spontaneous
  Country: US (occurrence: US)
  Receive Date: 20180102
  Receipt Date: 20180214
  Transmission Date: 20180509
  Serious: No
  Sender: FDA-Public Use
  Company Number: US-GLAXOSMITHKLINE-US2017201224

PATIENT
  Age: 64 Year
  Sex: Female
  Weight: 55 kg

DRUGS (2)
  1. EQUATE NICOTINE [Suspect]
     Active Substance: NICOTINE
     Dosage: UNK
  2. EQUATE NICOTINE [Suspect]
     Active Substance: NICOTINE
     Indication: SMOKING CESSATION THERAPY
     Dosage: 14 MG, PRN
     Dates: start: 20170910, end: 20170917

REACTIONS (2)
  - Product quality issue [Unknown]
  - Drug ineffective [Unknown]
